FAERS Safety Report 8597569-2 (Version None)
Quarter: 2012Q3

REPORT INFORMATION
  Report Type: 
  Country: None (occurrence: None)
  Receive Date: 20120816
  Receipt Date: 20120806
  Transmission Date: 20120928
  Serious: Yes (Life-Threatening)
  Sender: FDA-Public Use
  Company Number: IT-NOVOPROD-357488

PATIENT
  Age: 76 Year
  Sex: Male

DRUGS (1)
  1. REPAGLINIDE [Suspect]
     Indication: PRODUCT USED FOR UNKNOWN INDICATION
     Dosage: 1 TAB, QD
     Route: 048
     Dates: start: 20120704, end: 20120704

REACTIONS (1)
  - HYPOGLYCAEMIC COMA [None]
